FAERS Safety Report 4595462-3 (Version None)
Quarter: 2005Q1

REPORT INFORMATION
  Report Type: 
  Country: None (occurrence: None)
  Receive Date: 20050224
  Receipt Date: 20050208
  Transmission Date: 20050727
  Serious: Yes (Hospitalization)
  Sender: FDA-Public Use
  Company Number: USA050290306

PATIENT
  Age: 33 Year
  Sex: Female

DRUGS (6)
  1. CYMBALTA [Suspect]
     Indication: MAJOR DEPRESSION
     Dosage: 60 MG DAY
     Dates: start: 20040901, end: 20041201
  2. FOLTX [Concomitant]
  3. FLEXERIL [Concomitant]
  4. NIASPAN [Concomitant]
  5. OXYCODONE HCL [Concomitant]
  6. ULTRAM [Concomitant]

REACTIONS (4)
  - ELECTROCARDIOGRAM T WAVE ABNORMAL [None]
  - GRAND MAL CONVULSION [None]
  - HAEMATOCRIT DECREASED [None]
  - TINNITUS [None]
